FAERS Safety Report 6207432-X (Version None)
Quarter: 2009Q2

REPORT INFORMATION
  Report Type: 
  Country: None (occurrence: None)
  Receive Date: 20090528
  Receipt Date: 20090519
  Transmission Date: 20091009
  Serious: Yes (Death, Hospitalization, Other)
  Sender: FDA-Public Use
  Company Number: PHHY2009BR13106

PATIENT
  Age: 73 Year
  Sex: Female

DRUGS (7)
  1. FEMARA [Suspect]
     Indication: BREAST CANCER
     Dosage: THE REPORTER BELIEVED THAT THE DAILY DOSE WAS 80MG EVERY 8 HOURS
  2. FEMARA [Suspect]
     Indication: METASTASES TO BONE
  3. MORPHINE [Concomitant]
  4. GABAPENTIN [Concomitant]
     Indication: PAIN
  5. FRONTAL [Concomitant]
     Indication: PAIN
  6. PURAN T4 [Concomitant]
     Indication: HYPOTHYROIDISM
  7. ARADOIS H [Concomitant]
     Indication: BLOOD PRESSURE
     Dosage: 1 DF, QD

REACTIONS (5)
  - BREAST CANCER METASTATIC [None]
  - DRUG INEFFECTIVE [None]
  - INCORRECT DOSE ADMINISTERED [None]
  - MULTI-ORGAN FAILURE [None]
  - PAIN [None]
